FAERS Safety Report 19877354 (Version 1)
Quarter: 2021Q3

REPORT INFORMATION
  Report Type: Spontaneous
  Country: US (occurrence: US)
  Receive Date: 20210923
  Receipt Date: 20210923
  Transmission Date: 20211014
  Serious: Yes (Hospitalization)
  Sender: FDA-Public Use
  Company Number: US-BRISTOL-MYERS SQUIBB COMPANY-BMS-2021-094330

PATIENT
  Age: 83 Year
  Sex: Male
  Weight: 86.18 kg

DRUGS (1)
  1. ELIQUIS [Suspect]
     Active Substance: APIXABAN
     Indication: HEART VALVE INCOMPETENCE
     Dosage: 2.5 MILLIGRAM, BID
     Route: 048
     Dates: start: 2021

REACTIONS (4)
  - COVID-19 [Unknown]
  - Renal disorder [Unknown]
  - Cardiac disorder [Unknown]
  - Intentional product use issue [Unknown]

NARRATIVE: CASE EVENT DATE: 2021
